FAERS Safety Report 5591093-7 (Version None)
Quarter: 2008Q1

REPORT INFORMATION
  Report Type: 
  Country: None (occurrence: None)
  Receive Date: 20080111
  Receipt Date: 20080111
  Transmission Date: 20080703
  Serious: Yes (Hospitalization)
  Sender: FDA-Public Use
  Company Number: None

PATIENT
  Sex: Male
  Weight: 97.4 kg

DRUGS (16)
  1. XELODA [Suspect]
     Dosage: 23000 MG
  2. CAMPTOSAR [Suspect]
     Dosage: 330 MG
  3. ELOXATIN [Suspect]
     Dosage: 220 MG
  4. FENTANYL [Concomitant]
  5. ALBUTEROL [Concomitant]
  6. ALLOPURINOL [Concomitant]
  7. AMITRIPTYLINE HCL [Concomitant]
  8. ATENOLOL [Concomitant]
  9. ATROVENT [Concomitant]
  10. COMPAZINE [Concomitant]
  11. FLONASE [Concomitant]
  12. FLOVENT [Concomitant]
  13. LISINOPRIL [Concomitant]
  14. OMEPRAZOLE [Concomitant]
  15. PATANOL [Concomitant]
  16. PERCOCET [Concomitant]

REACTIONS (6)
  - ABDOMINAL PAIN [None]
  - CONFUSIONAL STATE [None]
  - DEHYDRATION [None]
  - DIARRHOEA [None]
  - NAUSEA [None]
  - VOMITING [None]
